FAERS Safety Report 5070231-9 (Version None)
Quarter: 2006Q3

REPORT INFORMATION
  Report Type: 
  Country: None (occurrence: None)
  Receive Date: 20060731
  Receipt Date: 20060727
  Transmission Date: 20061208
  Serious: Yes (Life-Threatening)
  Sender: FDA-Public Use
  Company Number: USA-2006-0024402

PATIENT
  Age: 59 Year
  Sex: Female

DRUGS (6)
  1. CEFDITOREN PIVOXIL [Suspect]
     Indication: BRONCHITIS ACUTE
     Dosage: 100 MG, DAILY, ORAL
     Route: 048
     Dates: start: 20060501, end: 20060501
  2. PA [Concomitant]
  3. MUCOSOLVAN      (AMBROXOL HYDROCHLORIDE) [Concomitant]
  4. ASTHMOLYLSIN D   (EPHEDRINE HYDROCHLORIDE, PHENOBARBITAL, PROXYPHYLLIN [Concomitant]
  5. SIMVASTATIN [Concomitant]
  6. RADEN [Concomitant]

REACTIONS (1)
  - ANAPHYLACTIC SHOCK [None]
